FAERS Safety Report 19518461 (Version 2)
Quarter: 2025Q3

REPORT INFORMATION
  Report Type: Spontaneous
  Country: CA (occurrence: CA)
  Receive Date: 20210712
  Receipt Date: 20250730
  Transmission Date: 20251020
  Serious: Yes (Life-Threatening, Hospitalization, Other)
  Sender: SANOFI AVENTIS
  Company Number: CA-SA-SAC20210705000533

PATIENT
  Age: 39 Year
  Sex: Female
  Weight: 74.5 kg

DRUGS (11)
  1. TAXOTERE [Suspect]
     Active Substance: DOCETAXEL
     Indication: Breast cancer female
     Dates: start: 20200423, end: 20200423
  2. ATIVAN [Concomitant]
     Active Substance: LORAZEPAM
  3. DEXAMETHASONE [Concomitant]
     Active Substance: DEXAMETHASONE
  4. DILTIAZEM [Concomitant]
     Active Substance: DILTIAZEM
  5. FILGRASTIM [Concomitant]
     Active Substance: FILGRASTIM
  6. FLECAINIDE [Concomitant]
     Active Substance: FLECAINIDE
  7. LORAZEPAM [Concomitant]
     Active Substance: LORAZEPAM
  8. NAPROXEN [Concomitant]
     Active Substance: NAPROXEN
  9. ONDANSETRON [Concomitant]
     Active Substance: ONDANSETRON
  10. PROCHLORPERAZINE [Concomitant]
     Active Substance: PROCHLORPERAZINE
  11. TRASTUZUMAB [Concomitant]
     Active Substance: TRASTUZUMAB
     Dates: start: 20200423

REACTIONS (4)
  - Septic shock [Recovered/Resolved]
  - Intestinal resection [Recovered/Resolved]
  - Neutropenic colitis [Recovered/Resolved]
  - Weight decreased [Recovered/Resolved]

NARRATIVE: CASE EVENT DATE: 20200430
